FAERS Safety Report 9131951 (Version 1)
Quarter: 2013Q1

REPORT INFORMATION
  Report Type: Report from Study
  Country: US (occurrence: US)
  Receive Date: 20130301
  Receipt Date: 20130301
  Transmission Date: 20140127
  Serious: No
  Sender: FDA-Public Use
  Company Number: US-MYLANLABS-2012S1023202

PATIENT
  Age: 17 Year
  Sex: Male
  Weight: 77.11 kg

DRUGS (2)
  1. CLARAVIS [Suspect]
  2. AMNESTEEM CAPSULES [Suspect]
     Route: 048

REACTIONS (2)
  - Dizziness [Recovered/Resolved]
  - Headache [Recovered/Resolved]
